FAERS Safety Report 9913322 (Version 2)
Quarter: 2014Q1

REPORT INFORMATION
  Report Type: Spontaneous
  Country: CO (occurrence: CO)
  Receive Date: 20140220
  Receipt Date: 20140220
  Transmission Date: 20141002
  Serious: Yes (Other)
  Sender: FDA-Public Use
  Company Number: CO-AMGEN-COLSP2013085952

PATIENT
  Age: 67 Year
  Sex: Female

DRUGS (5)
  1. ENBREL [Suspect]
     Indication: PSORIASIS
     Dosage: 50 MG, WEEKLY
     Route: 058
     Dates: start: 201309
  2. BETAMETHASONE [Concomitant]
     Indication: PSORIASIS
     Dosage: UNK
     Route: 061
     Dates: start: 2003
  3. RANITIDINE [Concomitant]
     Indication: GASTRITIS
     Dosage: 300 MG, 2X/DAY (EACH 12 HOURS)
     Route: 048
     Dates: start: 2008
  4. RANITIDINE [Concomitant]
     Indication: GASTRITIS
  5. PREGABALIN [Concomitant]
     Indication: HEMIPARESIS
     Dosage: 150 MG, 2X/DAY (EACH 12 HOURS9
     Route: 048
     Dates: start: 200912

REACTIONS (3)
  - Skin ulcer [Not Recovered/Not Resolved]
  - Arthralgia [Unknown]
  - Cellulitis [Not Recovered/Not Resolved]
